FAERS Safety Report 9573541 (Version 1)
Quarter: 2013Q4

REPORT INFORMATION
  Report Type: Spontaneous
  Country: US (occurrence: US)
  Receive Date: 20131001
  Receipt Date: 20131001
  Transmission Date: 20140711
  Serious: No
  Sender: FDA-Public Use
  Company Number: US-PURDUE-USA-2012-0083012

PATIENT
  Sex: Female

DRUGS (2)
  1. BUTRANS [Suspect]
     Indication: PRODUCT USED FOR UNKNOWN INDICATION
     Dosage: 10 MCG, Q1H
     Route: 062
     Dates: start: 20120224
  2. BUTRANS [Suspect]
     Dosage: 5 MCG, Q1H

REACTIONS (8)
  - Extra dose administered [Unknown]
  - Application site pain [Recovered/Resolved]
  - Application site vesicles [Recovered/Resolved]
  - Application site swelling [Recovered/Resolved]
  - Application site erythema [Recovered/Resolved]
  - Application site discharge [Unknown]
  - Application site rash [Unknown]
  - Application site pruritus [Unknown]
